FAERS Safety Report 12695320 (Version 1)
Quarter: 2016Q3

REPORT INFORMATION
  Report Type: Not Available
  Country: None (occurrence: US)
  Receive Date: 20160829
  Receipt Date: 20160829
  Transmission Date: 20161109
  Serious: No
  Sender: FDA-Public Use
  Company Number: US-AKORN-36432

PATIENT
  Sex: Female

DRUGS (1)
  1. LATANOPROST  OPHTHALMIC SOLUTION [Suspect]
     Active Substance: LATANOPROST

REACTIONS (1)
  - Night sweats [None]
